FAERS Safety Report 4270973-9 (Version None)
Quarter: 2004Q1

REPORT INFORMATION
  Report Type: 
  Country: None (occurrence: None)
  Receive Date: 20040114
  Receipt Date: 20030130
  Transmission Date: 20041129
  Serious: Yes (Hospitalization, Disabling, Other)
  Sender: FDA-Public Use
  Company Number: WAES 0301USA03191

PATIENT
  Age: 51 Year
  Sex: Male
  Weight: 91 kg

DRUGS (5)
  1. ASPIRIN [Concomitant]
  2. ASPIRIN [Concomitant]
  3. PLAQUENIL [Concomitant]
     Dates: start: 19991101
  4. PREDNISONE [Concomitant]
     Dates: start: 19991101
  5. VIOXX [Suspect]
     Indication: RHEUMATOID ARTHRITIS
     Route: 048
     Dates: start: 19991101, end: 20000101

REACTIONS (14)
  - ABDOMINAL DISCOMFORT [None]
  - ANGIOGRAM CEREBRAL ABNORMAL [None]
  - ANTINUCLEAR ANTIBODY POSITIVE [None]
  - AUTOIMMUNE DISORDER [None]
  - CAROTID ARTERY ANEURYSM [None]
  - CATARACT [None]
  - CEREBRAL INFARCTION [None]
  - CEREBROVASCULAR ACCIDENT [None]
  - FATIGUE [None]
  - HEADACHE [None]
  - INJURY [None]
  - PRURITUS [None]
  - TRANSIENT ISCHAEMIC ATTACK [None]
  - VASCULITIS [None]
